FAERS Safety Report 8449706-8 (Version None)
Quarter: 2012Q2

REPORT INFORMATION
  Report Type: 
  Country: None (occurrence: None)
  Receive Date: 20120620
  Receipt Date: 20120614
  Transmission Date: 20120825
  Serious: No
  Sender: FDA-Public Use
  Company Number: US-PFIZER INC-2012090382

PATIENT
  Sex: Female

DRUGS (2)
  1. BOTOX [Concomitant]
     Indication: MIGRAINE
  2. DETROL LA [Suspect]
     Dosage: UNK

REACTIONS (1)
  - MIGRAINE [None]
